FAERS Safety Report 24858817 (Version 1)
Quarter: 2025Q1

REPORT INFORMATION
  Report Type: Spontaneous
  Country: JP (occurrence: JP)
  Receive Date: 20250118
  Receipt Date: 20250118
  Transmission Date: 20250408
  Serious: Yes (Hospitalization, Other)
  Sender: NOVITIUM PHARMA
  Company Number: JP-NOVITIUMPHARMA-2025JPNVP00095

PATIENT
  Sex: Female

DRUGS (12)
  1. LACOSAMIDE [Suspect]
     Active Substance: LACOSAMIDE
     Indication: Epilepsy
  2. CARBAMAZEPINE [Suspect]
     Active Substance: CARBAMAZEPINE
     Indication: Epilepsy
  3. CLONAZEPAM [Concomitant]
     Active Substance: CLONAZEPAM
     Indication: Epilepsy
  4. TRICLOFOS [Concomitant]
     Active Substance: TRICLOFOS
     Indication: Epilepsy
  5. CLOBAZAM [Concomitant]
     Active Substance: CLOBAZAM
     Indication: Epilepsy
  6. GABAPENTIN [Concomitant]
     Active Substance: GABAPENTIN
     Indication: Epilepsy
  7. PIRACETAM [Concomitant]
     Active Substance: PIRACETAM
     Indication: Epilepsy
  8. CORTICOTROPIN [Concomitant]
     Active Substance: CORTICOTROPIN
     Indication: Epilepsy
  9. LEVETIRACETAM [Concomitant]
     Active Substance: LEVETIRACETAM
     Indication: Epilepsy
  10. PERAMPANEL [Concomitant]
     Active Substance: PERAMPANEL
     Indication: Epilepsy
  11. VALPROIC ACID [Concomitant]
     Active Substance: VALPROIC ACID
     Indication: Epilepsy
  12. VIGABATRIN [Concomitant]
     Active Substance: VIGABATRIN
     Indication: Epilepsy

REACTIONS (2)
  - Pneumonia [Unknown]
  - Drug ineffective [Unknown]
